FAERS Safety Report 6409043-X (Version None)
Quarter: 2009Q4

REPORT INFORMATION
  Report Type: 
  Country: None (occurrence: None)
  Receive Date: 20091019
  Receipt Date: 20091019
  Transmission Date: 20100525
  Serious: Yes (Life-Threatening, Other)
  Sender: FDA-Public Use
  Company Number: None

PATIENT
  Sex: Female
  Weight: 48.5349 kg

DRUGS (2)
  1. SEROQUEL XR [Suspect]
     Indication: NERVOUSNESS
     Dosage: 50MG ONCE DAILY ORAL 047
     Route: 048
     Dates: start: 20091023
  2. SEROQUEL XR [Suspect]
     Indication: NERVOUSNESS
     Dosage: 50MG ONCE DAILY ORAL 047
     Route: 048
     Dates: start: 20061001, end: 20091007

REACTIONS (12)
  - ANGINA PECTORIS [None]
  - BACK PAIN [None]
  - CHEST DISCOMFORT [None]
  - DEHYDRATION [None]
  - DIZZINESS [None]
  - DYSPNOEA [None]
  - FEELING HOT [None]
  - MOVEMENT DISORDER [None]
  - NAUSEA [None]
  - PALLOR [None]
  - RESPIRATORY DISORDER [None]
  - VISUAL IMPAIRMENT [None]
